FAERS Safety Report 7470609-X (Version None)
Quarter: 2011Q2

REPORT INFORMATION
  Report Type: 
  Country: None (occurrence: None)
  Receive Date: 20110510
  Receipt Date: 20110504
  Transmission Date: 20111010
  Serious: Yes (Hospitalization)
  Sender: FDA-Public Use
  Company Number: BR-ROCHE-768089

PATIENT
  Sex: Female
  Weight: 61 kg

DRUGS (5)
  1. PREDNISONE [Concomitant]
  2. CLOPIDOGREL [Concomitant]
  3. ACTEMRA [Suspect]
     Indication: RHEUMATOID ARTHRITIS
     Dosage: DOSE AND FREQUENCY: UNKNOWN
     Route: 042
     Dates: start: 20100501
  4. SOTALOL HCL [Concomitant]
  5. PURAN T4 [Concomitant]

REACTIONS (1)
  - CHEST PAIN [None]
